FAERS Safety Report 14829858 (Version 1)
Quarter: 2018Q2

REPORT INFORMATION
  Report Type: Spontaneous
  Country: IN (occurrence: IN)
  Receive Date: 20180430
  Receipt Date: 20180430
  Transmission Date: 20180711
  Serious: Yes (Other)
  Sender: FDA-Public Use
  Company Number: IN-ANIPHARMA-2018-IN-000029

PATIENT
  Age: 76 Year
  Sex: Male

DRUGS (1)
  1. PHENYTOIN SODIUM (NON-SPECIFIC) [Suspect]
     Active Substance: PHENYTOIN SODIUM

REACTIONS (2)
  - Drug reaction with eosinophilia and systemic symptoms [Unknown]
  - Cholestatic liver injury [Unknown]
